FAERS Safety Report 16770444 (Version 4)
Quarter: 2021Q2

REPORT INFORMATION
  Report Type: Spontaneous
  Country: US (occurrence: US)
  Receive Date: 20190904
  Receipt Date: 20210630
  Transmission Date: 20210716
  Serious: Yes (Other)
  Sender: FDA-Public Use
  Company Number: US-GILEAD-2019-0425770

PATIENT
  Age: 43 Year
  Sex: Male
  Weight: 104.76 kg

DRUGS (124)
  1. VITAMIN D2 [Concomitant]
     Active Substance: ERGOCALCIFEROL
  2. HEPARIN [Concomitant]
     Active Substance: HEPARIN SODIUM
  3. LIPITOR [Concomitant]
     Active Substance: ATORVASTATIN CALCIUM
  4. FAMOTIDINE. [Concomitant]
     Active Substance: FAMOTIDINE
  5. NAPROXEN. [Concomitant]
     Active Substance: NAPROXEN
  6. ZANTAC [Concomitant]
     Active Substance: RANITIDINE HYDROCHLORIDE
  7. CHLORTHALIDONE. [Concomitant]
     Active Substance: CHLORTHALIDONE
  8. PERMETHRIN. [Concomitant]
     Active Substance: PERMETHRIN
  9. NICOTINE. [Concomitant]
     Active Substance: NICOTINE
  10. LYRICA [Concomitant]
     Active Substance: PREGABALIN
  11. DIPHENOXYLATE/ATROPINE [Concomitant]
     Active Substance: ATROPINE\DIPHENOXYLATE
  12. Q?PAP [Concomitant]
     Active Substance: ACETAMINOPHEN
  13. NICODERM CQ [Concomitant]
     Active Substance: NICOTINE
  14. A+D ORIGINAL [Concomitant]
  15. MINOCYCLINE [Concomitant]
     Active Substance: MINOCYCLINE HYDROCHLORIDE
  16. FENTANYL CITRATE. [Concomitant]
     Active Substance: FENTANYL CITRATE
  17. CRESTOR [Concomitant]
     Active Substance: ROSUVASTATIN CALCIUM
  18. ZOFRAN [Concomitant]
     Active Substance: ONDANSETRON HYDROCHLORIDE
  19. CATAPRES [Concomitant]
     Active Substance: CLONIDINE HYDROCHLORIDE
  20. SIMETHICONE (DIMETHICONE) [Concomitant]
     Active Substance: DIMETHICONE
  21. SOOLANTRA [Concomitant]
     Active Substance: IVERMECTIN
  22. KETOCONAZOLE. [Concomitant]
     Active Substance: KETOCONAZOLE
  23. POLYETHYLENE GLYCOL 3350. [Concomitant]
     Active Substance: POLYETHYLENE GLYCOL 3350
  24. MORPHINE SULFATE. [Concomitant]
     Active Substance: MORPHINE SULFATE
  25. STROMECTOL [Concomitant]
     Active Substance: IVERMECTIN
  26. ROBITUSSIN DM [Concomitant]
     Active Substance: DEXTROMETHORPHAN HYDROBROMIDE\GUAIFENESIN
  27. SARNA [CAMPHOR;MENTHOL] [Concomitant]
  28. DILAUDID [Concomitant]
     Active Substance: HYDROMORPHONE HYDROCHLORIDE
  29. VISTARIL [Concomitant]
     Active Substance: HYDROXYZINE PAMOATE
  30. NARCAN [Concomitant]
     Active Substance: NALOXONE HYDROCHLORIDE
  31. THORAZINE [Concomitant]
     Active Substance: CHLORPROMAZINE
  32. TRUVADA [Suspect]
     Active Substance: EMTRICITABINE\TENOFOVIR DISOPROXIL FUMARATE
     Indication: HIV INFECTION
     Dosage: UNK
     Route: 048
     Dates: start: 20130204, end: 20161104
  33. GENVOYA [Concomitant]
     Active Substance: COBICISTAT\ELVITEGRAVIR\EMTRICITABINE\TENOFOVIR ALAFENAMIDE FUMARATE
  34. BUMEX [Concomitant]
     Active Substance: BUMETANIDE
  35. TIVICAY [Concomitant]
     Active Substance: DOLUTEGRAVIR SODIUM
  36. PRILOSEC [Concomitant]
     Active Substance: OMEPRAZOLE MAGNESIUM
  37. FLONASE ALLERGY RELIEF [Concomitant]
     Active Substance: FLUTICASONE PROPIONATE
  38. LOPRESSOR [Concomitant]
     Active Substance: METOPROLOL TARTRATE
  39. CLARITIN [Concomitant]
     Active Substance: LORATADINE
  40. SOMA [Concomitant]
     Active Substance: CARISOPRODOL
  41. AMMONIUM LACTATE. [Concomitant]
     Active Substance: AMMONIUM LACTATE
  42. TAMIFLU [Concomitant]
     Active Substance: OSELTAMIVIR PHOSPHATE
  43. BETAMETHASONE DIPROPIONATE. [Concomitant]
     Active Substance: BETAMETHASONE DIPROPIONATE
  44. PERCOCET [Concomitant]
     Active Substance: ACETAMINOPHEN\OXYCODONE HYDROCHLORIDE
  45. ZOLPIDEM TARTRATE. [Concomitant]
     Active Substance: ZOLPIDEM TARTRATE
  46. LOVENOX [LEVOFLOXACIN] [Concomitant]
     Active Substance: LEVOFLOXACIN
  47. DICLOFENAC SODIUM. [Concomitant]
     Active Substance: DICLOFENAC SODIUM
  48. INDOMETHACIN [INDOMETACIN] [Concomitant]
     Active Substance: INDOMETHACIN
  49. ACETAMINOPHEN;HYDROCODONE [Concomitant]
     Active Substance: ACETAMINOPHEN\HYDROCODONE
  50. HYDROXYZINE [Concomitant]
     Active Substance: HYDROXYZINE HYDROCHLORIDE
  51. CEPHALEXIN [CEFALEXIN] [Concomitant]
     Active Substance: CEPHALEXIN
  52. DIPHENHYDRAMINE. [Concomitant]
     Active Substance: DIPHENHYDRAMINE
  53. ATARAX [Concomitant]
     Active Substance: HYDROXYZINE HYDROCHLORIDE
  54. ZEMURON [Concomitant]
     Active Substance: ROCURONIUM BROMIDE
  55. PROSTIGMIN [NEOSTIGMINE BROMIDE] [Concomitant]
  56. TAB A VITE [Concomitant]
  57. AMITRIPTYLINE [Concomitant]
     Active Substance: AMITRIPTYLINE
  58. ATORVASTATIN [Concomitant]
     Active Substance: ATORVASTATIN
  59. TRIAMCINOLONE [Concomitant]
     Active Substance: TRIAMCINOLONE
  60. GENTAMICIN. [Concomitant]
     Active Substance: GENTAMICIN
  61. MAALOX PLUS [ALGELDRATE;DIMETICONE;MAGNESIUM HYDROXIDE] [Concomitant]
  62. COREG [Concomitant]
     Active Substance: CARVEDILOL
  63. SELENIUM SULFIDE. [Concomitant]
     Active Substance: SELENIUM SULFIDE
  64. ALLOPURINOL. [Concomitant]
     Active Substance: ALLOPURINOL
  65. NITROGLYCERIN. [Concomitant]
     Active Substance: NITROGLYCERIN
  66. MUCINEX [Concomitant]
     Active Substance: GUAIFENESIN
  67. COLCHICINE. [Concomitant]
     Active Substance: COLCHICINE
  68. FLUTICASONE PROPIONATE. [Concomitant]
     Active Substance: FLUTICASONE PROPIONATE
  69. HYDROMORPHONE [Concomitant]
     Active Substance: HYDROMORPHONE
  70. GABAPENTIN. [Concomitant]
     Active Substance: GABAPENTIN
  71. BUMETANIDE. [Concomitant]
     Active Substance: BUMETANIDE
  72. NORCO [Concomitant]
     Active Substance: ACETAMINOPHEN\HYDROCODONE BITARTRATE
  73. HABITROL [Concomitant]
     Active Substance: NICOTINE
  74. VITAMIN B12 [Concomitant]
     Active Substance: CYANOCOBALAMIN
  75. ACETAMINOPHEN. [Concomitant]
     Active Substance: ACETAMINOPHEN
  76. ASPIRIN [ACETYLSALICYLIC ACID] [Concomitant]
     Active Substance: ASPIRIN
  77. METHYLPREDNISOLONE. [Concomitant]
     Active Substance: METHYLPREDNISOLONE
  78. LOTENSIN [CAPTOPRIL] [Concomitant]
     Active Substance: CAPTOPRIL
  79. HYDROCHLOROTHIAZIDE. [Concomitant]
     Active Substance: HYDROCHLOROTHIAZIDE
  80. BENAZEPRIL [Concomitant]
     Active Substance: BENAZEPRIL HYDROCHLORIDE
  81. ACETAMINOPHEN W/OXYCODONE [Concomitant]
     Active Substance: ACETAMINOPHEN\OXYCODONE HYDROCHLORIDE
  82. PLAVIX [Concomitant]
     Active Substance: CLOPIDOGREL BISULFATE
  83. LINDANE. [Concomitant]
     Active Substance: LINDANE
  84. FLEXERIL [Concomitant]
     Active Substance: CYCLOBENZAPRINE HYDROCHLORIDE
  85. COLCRYS [Concomitant]
     Active Substance: COLCHICINE
  86. COLACE [Concomitant]
     Active Substance: DOCUSATE SODIUM
  87. MILK OF MAGNESIA [Concomitant]
     Active Substance: MAGNESIUM HYDROXIDE
  88. MS CONTIN [Concomitant]
     Active Substance: MORPHINE SULFATE
  89. K?DUR [Concomitant]
     Active Substance: POTASSIUM CHLORIDE
  90. OXYCONTIN [Concomitant]
     Active Substance: OXYCODONE HYDROCHLORIDE
  91. ROBINUL [Concomitant]
     Active Substance: GLYCOPYRROLATE
  92. HIBISTAT [CHLORHEXIDINE GLUCONATE] [Concomitant]
  93. TRUVADA [Suspect]
     Active Substance: EMTRICITABINE\TENOFOVIR DISOPROXIL FUMARATE
     Dosage: UNK
     Route: 048
     Dates: start: 20060425, end: 20161215
  94. PROTONIX [Concomitant]
     Active Substance: PANTOPRAZOLE SODIUM
  95. CALCIUM ANTACID [Concomitant]
     Active Substance: CALCIUM CARBONATE
  96. LOVAZA [Concomitant]
     Active Substance: OMEGA-3-ACID ETHYL ESTERS
  97. AMLODIPINE BESYLATE. [Concomitant]
     Active Substance: AMLODIPINE BESYLATE
  98. TENORMIN [Concomitant]
     Active Substance: ATENOLOL
  99. NIASPAN [Concomitant]
     Active Substance: NIACIN
  100. VIBRAMYCIN [DOXYCYCLINE HYCLATE] [Concomitant]
  101. MAPAP [Concomitant]
     Active Substance: ACETAMINOPHEN
  102. TESSALON [Concomitant]
     Active Substance: BENZONATATE
  103. DOCUSATE [Concomitant]
     Active Substance: DOCUSATE
  104. VERSED [Concomitant]
     Active Substance: MIDAZOLAM HYDROCHLORIDE
  105. BIKTARVY [Concomitant]
     Active Substance: BICTEGRAVIR SODIUM\EMTRICITABINE\TENOFOVIR ALAFENAMIDE FUMARATE
  106. AMOXICILLIN. [Concomitant]
     Active Substance: AMOXICILLIN
  107. CORTISONE [Concomitant]
     Active Substance: CORTISONE
  108. PREDNISONE. [Concomitant]
     Active Substance: PREDNISONE
  109. ISENTRESS [Concomitant]
     Active Substance: RALTEGRAVIR POTASSIUM
  110. NORVIR [Concomitant]
     Active Substance: RITONAVIR
  111. PREZISTA [Concomitant]
     Active Substance: DARUNAVIR ETHANOLATE
  112. DIAZEPAM. [Concomitant]
     Active Substance: DIAZEPAM
  113. ENOXAPARIN [Concomitant]
     Active Substance: ENOXAPARIN
  114. METOPROLOL SUCCINATE. [Concomitant]
     Active Substance: METOPROLOL SUCCINATE
  115. TOBRAMYCIN AND DEXAMETHASONE [Concomitant]
     Active Substance: DEXAMETHASONE\TOBRAMYCIN
  116. CEFTRIAXONE. [Concomitant]
     Active Substance: CEFTRIAXONE
  117. TRAMADOL. [Concomitant]
     Active Substance: TRAMADOL
  118. NITROSTAT [Concomitant]
     Active Substance: NITROGLYCERIN
  119. Q?TUSSIN DM [Concomitant]
  120. BENADRYL ITCH STOPPING GEL MAXIMUM STRENGTH [Concomitant]
  121. ATROPINE SULFATE. [Concomitant]
     Active Substance: ATROPINE SULFATE
  122. REGLAN [Concomitant]
     Active Substance: METOCLOPRAMIDE HYDROCHLORIDE
  123. MARCAINE WITH EPINEPHRINE [Concomitant]
     Active Substance: BUPIVACAINE HYDROCHLORIDE\EPINEPHRINE BITARTRATE
  124. CYKLOKAPRON [Concomitant]
     Active Substance: TRANEXAMIC ACID

REACTIONS (16)
  - Renal impairment [Unknown]
  - Economic problem [Unknown]
  - End stage renal disease [Unknown]
  - Bone density decreased [Not Recovered/Not Resolved]
  - Anxiety [Unknown]
  - Chronic kidney disease [Unknown]
  - Tooth loss [Unknown]
  - Pain [Unknown]
  - Hip arthroplasty [Unknown]
  - Osteonecrosis [Unknown]
  - Emotional distress [Unknown]
  - Chronic kidney disease [Not Recovered/Not Resolved]
  - Anhedonia [Unknown]
  - Chronic kidney disease [Not Recovered/Not Resolved]
  - Condition aggravated [Unknown]
  - Blood creatinine increased [Unknown]

NARRATIVE: CASE EVENT DATE: 201308
